FAERS Safety Report 7691021-4 (Version None)
Quarter: 2011Q3

REPORT INFORMATION
  Report Type: 
  Country: None (occurrence: None)
  Receive Date: 20110812
  Receipt Date: 20110729
  Transmission Date: 20111222
  Serious: Yes (Hospitalization)
  Sender: FDA-Public Use
  Company Number: EU-2011-10136

PATIENT
  Sex: Female
  Weight: 64.0025 kg

DRUGS (9)
  1. LEVOTHYROXINE SODIUM [Concomitant]
  2. SAMSCA [Suspect]
     Indication: INAPPROPRIATE ANTIDIURETIC HORMONE SECRETION
     Dosage: 15 MG MILLIGRAM(S), DAILY DOSE, ORAL
     Route: 048
     Dates: start: 20110401, end: 20110402
  3. SAMSCA [Suspect]
     Indication: HYPONATRAEMIA
     Dosage: 15 MG MILLIGRAM(S), DAILY DOSE, ORAL
     Route: 048
     Dates: start: 20110401, end: 20110402
  4. METOPROLOL TARTRATE [Concomitant]
  5. PREDNISOLON (PREDNISOLON) [Concomitant]
  6. OXASCAND (OXAZEPAM0 [Concomitant]
  7. COMBIVENT(LPRATROPIUM BROMIDE, SALBUTAMOL SULFATE) [Concomitant]
  8. ACETYLCYSTEIN (ACETYLCYSTEIN) [Concomitant]
  9. MOLLIPECT (BROMHEXINE HYDROCHLORIDE, EPHEDRINE HYDROCHLORIDE, ETHANOL, [Concomitant]

REACTIONS (3)
  - CHRONIC OBSTRUCTIVE PULMONARY DISEASE [None]
  - CONCOMITANT DISEASE AGGRAVATED [None]
  - PNEUMONIA [None]
